FAERS Safety Report 6826981-4 (Version None)
Quarter: 2010Q3

REPORT INFORMATION
  Report Type: 
  Country: None (occurrence: None)
  Receive Date: 20100709
  Receipt Date: 20100624
  Transmission Date: 20110219
  Serious: Yes (Hospitalization)
  Sender: FDA-Public Use
  Company Number: US-BAYER-201020525NA

PATIENT
  Age: 19 Year
  Sex: Female
  Weight: 98 kg

DRUGS (8)
  1. YASMIN [Suspect]
     Indication: CONTRACEPTION
     Route: 048
     Dates: start: 20080501, end: 20080701
  2. YASMIN [Suspect]
     Route: 048
     Dates: start: 20080101, end: 20080601
  3. YAZ [Suspect]
     Indication: CONTRACEPTION
     Route: 048
     Dates: start: 20080129, end: 20080601
  4. CLARITIN [Concomitant]
     Indication: HYPERSENSITIVITY
     Route: 065
  5. ESTRADIOL/DROSPIRENONE [Concomitant]
     Route: 065
  6. MEDROXYPROGESTERONE [Concomitant]
     Route: 065
     Dates: start: 20080825
  7. ESTRADIOL/LEVONORGESTREL [Concomitant]
     Dosage: 20 MCG/0.1 MG
     Route: 065
  8. FERROUS SULFATE [Concomitant]
     Route: 065

REACTIONS (22)
  - AGITATION [None]
  - ANXIETY [None]
  - ANXIETY DISORDER [None]
  - CHEST PAIN [None]
  - CONFUSIONAL STATE [None]
  - CONVULSION [None]
  - CYANOSIS [None]
  - DEPRESSION [None]
  - DIZZINESS [None]
  - DYSPNOEA [None]
  - HEAD INJURY [None]
  - HEADACHE [None]
  - MEMORY IMPAIRMENT [None]
  - PALPITATIONS [None]
  - POSTICTAL STATE [None]
  - RESPIRATORY DISTRESS [None]
  - RESPIRATORY RATE [None]
  - SYNCOPE [None]
  - TACHYPNOEA [None]
  - UNRESPONSIVE TO STIMULI [None]
  - VERTIGO [None]
  - VOMITING [None]
